FAERS Safety Report 15293201 (Version 1)
Quarter: 2018Q3

REPORT INFORMATION
  Report Type: Spontaneous
  Country: PL (occurrence: PL)
  Receive Date: 20180820
  Receipt Date: 20180820
  Transmission Date: 20181010
  Serious: Yes (Other)
  Sender: FDA-Public Use
  Company Number: PL-MERCK KGAA-2053930

PATIENT
  Age: 26 Year
  Sex: Female

DRUGS (1)
  1. NOVOTHYROX [Suspect]
     Active Substance: LEVOTHYROXINE SODIUM
     Indication: AUTOIMMUNE THYROIDITIS

REACTIONS (8)
  - Arthralgia [None]
  - Peripheral swelling [None]
  - Vertigo [None]
  - Guillain-Barre syndrome [None]
  - Decreased appetite [None]
  - Amenorrhoea [None]
  - Mood altered [None]
  - Diarrhoea [None]

NARRATIVE: CASE EVENT DATE: 201807
